FAERS Safety Report 20896557 (Version 1)
Quarter: 2022Q2

REPORT INFORMATION
  Report Type: Spontaneous
  Country: CH (occurrence: None)
  Receive Date: 20220531
  Receipt Date: 20220531
  Transmission Date: 20220720
  Serious: Yes (Other)
  Sender: FDA-Public Use
  Company Number: CH-ROCHE-3104610

PATIENT
  Sex: Male

DRUGS (1)
  1. MABTHERA [Suspect]
     Active Substance: RITUXIMAB
     Indication: Pemphigus
     Dosage: MABTHERA 2X EACH 1000 MG 2 WEEKS APART
     Route: 042

REACTIONS (1)
  - Disease progression [Unknown]
